FAERS Safety Report 10335046 (Version 2)
Quarter: 2014Q3

REPORT INFORMATION
  Report Type: Spontaneous
  Country: US (occurrence: None)
  Receive Date: 20140721
  Receipt Date: 20140728
  Transmission Date: 20150326
  Serious: Yes (Other)
  Sender: FDA-Public Use
  Company Number: 2014VER00103

PATIENT
  Age: 13 Year
  Sex: Male

DRUGS (1)
  1. MYORISAN [Suspect]
     Active Substance: ISOTRETINOIN
     Indication: ACNE
     Dates: start: 20140508, end: 20140709

REACTIONS (3)
  - Mood altered [None]
  - Anger [None]
  - Depression [None]

NARRATIVE: CASE EVENT DATE: 2014
